FAERS Safety Report 13164969 (Version 1)
Quarter: 2017Q1

REPORT INFORMATION
  Report Type: Spontaneous
  Country: US (occurrence: US)
  Receive Date: 20170130
  Receipt Date: 20170130
  Transmission Date: 20170428
  Serious: No
  Sender: FDA-Public Use
  Company Number: US-ALLERGAN-1668371US

PATIENT
  Sex: Female

DRUGS (1)
  1. ALORA [Suspect]
     Active Substance: ESTRADIOL
     Indication: PRODUCT USED FOR UNKNOWN INDICATION
     Dosage: UNK MG, UNK
     Route: 062

REACTIONS (6)
  - Sedation [None]
  - Dizziness [Unknown]
  - Drug ineffective [Unknown]
  - Product physical issue [Unknown]
  - Somnolence [Unknown]
  - Product adhesion issue [None]
